FAERS Safety Report 16533233 (Version 3)
Quarter: 2019Q3

REPORT INFORMATION
  Report Type: Spontaneous
  Country: US (occurrence: US)
  Receive Date: 20190705
  Receipt Date: 20190819
  Transmission Date: 20191004
  Serious: No
  Sender: FDA-Public Use
  Company Number: US-AMGEN-USASP2019106273

PATIENT
  Age: 57 Year
  Sex: Female
  Weight: 86.18 kg

DRUGS (2)
  1. ENBREL [Suspect]
     Active Substance: ETANERCEPT
     Indication: RHEUMATOID ARTHRITIS
     Dosage: 10 MILLIGRAM, QWK
     Route: 065
     Dates: start: 2009, end: 2016
  2. ARAVA [Suspect]
     Active Substance: LEFLUNOMIDE
     Indication: RHEUMATOID ARTHRITIS
     Dosage: UNK
     Route: 065
     Dates: start: 2009, end: 2016

REACTIONS (3)
  - Therapeutic product effect decreased [Unknown]
  - Off label use [Unknown]
  - Drug tolerance [Unknown]

NARRATIVE: CASE EVENT DATE: 2009
